FAERS Safety Report 5481557-9 (Version None)
Quarter: 2007Q4

REPORT INFORMATION
  Report Type: 
  Country: None (occurrence: None)
  Receive Date: 20071005
  Receipt Date: 20071005
  Transmission Date: 20080405
  Serious: Yes (Hospitalization)
  Sender: FDA-Public Use
  Company Number: None

PATIENT
  Sex: Female
  Weight: 103 kg

DRUGS (13)
  1. BACTRIM DS [Suspect]
     Dosage: 10000 MG
     Dates: end: 20070829
  2. CYCLOPHOSPHAMIDE [Suspect]
     Dosage: 2180 MG
     Dates: end: 20070807
  3. CYTARABINE [Suspect]
     Dosage: 13110 MG
     Dates: end: 20070809
  4. G-CSF (FILGRASTIM, AMGEN) [Suspect]
     Dosage: 5280 MG
     Dates: end: 20070820
  5. METHOTREXATE [Suspect]
     Dosage: 15 MG
     Dates: end: 20070807
  6. ACYCLOVIR [Concomitant]
  7. COMPAZINE [Concomitant]
  8. DIGOXIN [Concomitant]
  9. DILTIAZEM CD [Concomitant]
  10. LEVOTHYROXINE SODIUM [Concomitant]
  11. POTASSIUM CHLORIDE [Concomitant]
  12. PROTONIX [Concomitant]
  13. ZOLOFT [Concomitant]

REACTIONS (12)
  - ARTHRALGIA [None]
  - ARTHRITIS INFECTIVE [None]
  - FALL [None]
  - FEBRILE NEUTROPENIA [None]
  - HYPOREFLEXIA [None]
  - JOINT INJURY [None]
  - MENISCUS LESION [None]
  - NEUROPATHY [None]
  - PARAESTHESIA [None]
  - PERONEAL NERVE PALSY [None]
  - STAPHYLOCOCCAL INFECTION [None]
  - TREMOR [None]
